FAERS Safety Report 25847707 (Version 1)
Quarter: 2025Q3

REPORT INFORMATION
  Report Type: Spontaneous
  Country: US (occurrence: US)
  Receive Date: 20250925
  Receipt Date: 20250925
  Transmission Date: 20251020
  Serious: No
  Sender: SANOFI AVENTIS
  Company Number: US-SA-2025SA286473

PATIENT
  Sex: Female
  Weight: 78.18 kg

DRUGS (2)
  1. DUPIXENT [Suspect]
     Active Substance: DUPILUMAB
     Indication: Neurodermatitis
     Dosage: 300 MG, QOW
     Route: 058
     Dates: end: 20250912
  2. NEMLUVIO [Concomitant]
     Active Substance: NEMOLIZUMAB-ILTO

REACTIONS (1)
  - Pruritus [Not Recovered/Not Resolved]
